FAERS Safety Report 10183976 (Version 2)
Quarter: 2014Q2

REPORT INFORMATION
  Report Type: Spontaneous
  Country: US (occurrence: US)
  Receive Date: 20140520
  Receipt Date: 20140520
  Transmission Date: 20141212
  Serious: No
  Sender: FDA-Public Use
  Company Number: US-MYLANLABS-2013S1008934

PATIENT
  Age: 43 Year
  Sex: Female
  Weight: 64.41 kg

DRUGS (1)
  1. ESTRADIOL TABLETS, USP [Suspect]
     Route: 048
     Dates: start: 201302

REACTIONS (4)
  - Tachycardia [Not Recovered/Not Resolved]
  - Headache [Not Recovered/Not Resolved]
  - Weight increased [Not Recovered/Not Resolved]
  - Nausea [Not Recovered/Not Resolved]
